APPROVED DRUG PRODUCT: CHOLEBRINE
Active Ingredient: IOCETAMIC ACID
Strength: 750MG
Dosage Form/Route: TABLET;ORAL
Application: N017129 | Product #001
Applicant: MALLINCKRODT MEDICAL INC
Approved: Approved Prior to Jan 1, 1982 | RLD: No | RS: No | Type: DISCN